FAERS Safety Report 4982537-X (Version None)
Quarter: 2006Q2

REPORT INFORMATION
  Report Type: 
  Country: None (occurrence: None)
  Receive Date: 20060421
  Receipt Date: 20060413
  Transmission Date: 20061013
  Serious: Yes (Other)
  Sender: FDA-Public Use
  Company Number: 2006051110

PATIENT
  Sex: Male

DRUGS (1)
  1. DRAMAMINE [Suspect]
     Dosage: 24 TABLETS ONCE, ORAL
     Route: 048
     Dates: start: 20060413, end: 20060413

REACTIONS (2)
  - MALAISE [None]
  - OVERDOSE [None]
